FAERS Safety Report 25419158 (Version 2)
Quarter: 2025Q4

REPORT INFORMATION
  Report Type: Spontaneous
  Country: US (occurrence: US)
  Receive Date: 20250610
  Receipt Date: 20251218
  Transmission Date: 20260118
  Serious: No
  Sender: MERCK SHARP & DOHME LLC
  Company Number: US-009507513-2288167

PATIENT
  Sex: Female
  Weight: 108.8 kg

DRUGS (24)
  1. SOTATERCEPT-CSRK [Suspect]
     Active Substance: SOTATERCEPT-CSRK
     Indication: Product used for unknown indication
  2. SOTATERCEPT-CSRK [Suspect]
     Active Substance: SOTATERCEPT-CSRK
  3. SOTATERCEPT-CSRK [Suspect]
     Active Substance: SOTATERCEPT-CSRK
  4. SOTATERCEPT-CSRK [Suspect]
     Active Substance: SOTATERCEPT-CSRK
  5. REMODULIN [Suspect]
     Active Substance: TREPROSTINIL
     Indication: Pulmonary arterial hypertension
     Dosage: FREQUENCY: CONTINUING
     Route: 058
     Dates: start: 20250131
  6. ATORVASTATIN CALCIUM [Concomitant]
     Active Substance: ATORVASTATIN CALCIUM
  7. ALDACTONE [Concomitant]
     Active Substance: SPIRONOLACTONE
  8. SODIUM CHLORIDE [Concomitant]
     Active Substance: SODIUM CHLORIDE
  9. KETAMINE HYDROCHLORIDE [Concomitant]
     Active Substance: KETAMINE HYDROCHLORIDE
  10. LECITHIN [Concomitant]
     Active Substance: LECITHIN
  11. POTASSIUM CHLORIDE [Concomitant]
     Active Substance: POTASSIUM CHLORIDE
  12. ADCIRCA [Concomitant]
     Active Substance: TADALAFIL
  13. CLONIDINE [Concomitant]
     Active Substance: CLONIDINE
  14. KETOPROFEN [Concomitant]
     Active Substance: KETOPROFEN
  15. OXYGEN [Concomitant]
     Active Substance: OXYGEN
  16. LIDOCAINE HYDROCHLORIDE [Concomitant]
     Active Substance: LIDOCAINE HYDROCHLORIDE
  17. DIGOXIN [Concomitant]
     Active Substance: DIGOXIN
  18. ESCITALOPRAM OXALATE [Concomitant]
     Active Substance: ESCITALOPRAM OXALATE
  19. AMITRIPTYLINE HYDROCHLORIDE [Concomitant]
     Active Substance: AMITRIPTYLINE HYDROCHLORIDE
  20. GABAPENTIN [Concomitant]
     Active Substance: GABAPENTIN
  21. POLOXAMER [Concomitant]
     Active Substance: POLOXAMER
  22. AMBRISENTAN [Concomitant]
     Active Substance: AMBRISENTAN
  23. TORSEMIDE [Concomitant]
     Active Substance: TORSEMIDE
  24. METFORMIN HYDROCHLORIDE [Concomitant]
     Active Substance: METFORMIN HYDROCHLORIDE

REACTIONS (5)
  - Asthenia [Unknown]
  - Therapy non-responder [Unknown]
  - Product dose omission issue [Unknown]
  - Illness [Unknown]
  - Malaise [Unknown]

NARRATIVE: CASE EVENT DATE: 20250101
